FAERS Safety Report 18666583 (Version 3)
Quarter: 2021Q1

REPORT INFORMATION
  Report Type: Spontaneous
  Country: CN (occurrence: CN)
  Receive Date: 20201227
  Receipt Date: 20210209
  Transmission Date: 20210419
  Serious: Yes (Other)
  Sender: FDA-Public Use
  Company Number: CN-ABBVIE-20K-035-3703872-00

PATIENT
  Age: 50 Year
  Sex: Male
  Weight: 70 kg

DRUGS (18)
  1. PRAVASTATIN. [Suspect]
     Active Substance: PRAVASTATIN
     Indication: HYPERLIPIDAEMIA
     Route: 048
     Dates: start: 20200204, end: 20200228
  2. QUETIAPINE FUMARATE. [Interacting]
     Active Substance: QUETIAPINE FUMARATE
     Route: 048
     Dates: start: 20200211, end: 20200228
  3. PREDNISONE. [Concomitant]
     Active Substance: PREDNISONE
     Indication: ANTIINFLAMMATORY THERAPY
     Route: 048
     Dates: start: 20200204, end: 20200206
  4. PREDNISONE. [Concomitant]
     Active Substance: PREDNISONE
     Route: 048
     Dates: start: 20200208, end: 20200209
  5. LEVOFLOXACIN. [Concomitant]
     Active Substance: LEVOFLOXACIN
     Indication: INFECTION PROPHYLAXIS
     Dates: start: 20200203
  6. ARBIDOL [Suspect]
     Active Substance: UMIFENOVIR
     Indication: COVID-19 PNEUMONIA
     Route: 048
     Dates: start: 20200206, end: 20200210
  7. NIFEDIPINE. [Concomitant]
     Active Substance: NIFEDIPINE
     Indication: HYPERTENSION
     Route: 048
     Dates: start: 20200211, end: 20200228
  8. OSELTAMIVIR [Concomitant]
     Active Substance: OSELTAMIVIR
     Indication: ANTIVIRAL TREATMENT
     Dates: start: 20200203
  9. AMBROXOL [Concomitant]
     Active Substance: AMBROXOL
     Indication: COUGH
  10. RIBAVIRIN. [Concomitant]
     Active Substance: RIBAVIRIN
     Indication: ANTIVIRAL TREATMENT
     Route: 065
     Dates: start: 20200203, end: 202002
  11. RIBAVIRIN. [Concomitant]
     Active Substance: RIBAVIRIN
     Route: 042
     Dates: start: 20200212, end: 20200222
  12. CLONAZEPAM. [Interacting]
     Active Substance: CLONAZEPAM
     Indication: ANTIDEPRESSANT THERAPY
     Route: 048
     Dates: start: 20200205, end: 20200208
  13. PREDNISONE. [Concomitant]
     Active Substance: PREDNISONE
     Route: 048
     Dates: start: 20200206, end: 20200207
  14. AMBROXOL [Concomitant]
     Active Substance: AMBROXOL
     Indication: PRODUCTIVE COUGH
  15. KALETRA [Suspect]
     Active Substance: LOPINAVIR\RITONAVIR
     Indication: COVID-19 PNEUMONIA
     Route: 048
     Dates: start: 20200204, end: 20200206
  16. QUETIAPINE FUMARATE. [Interacting]
     Active Substance: QUETIAPINE FUMARATE
     Indication: ANTIDEPRESSANT THERAPY
     Route: 048
     Dates: start: 20200205, end: 20200208
  17. CLONAZEPAM. [Interacting]
     Active Substance: CLONAZEPAM
     Route: 048
     Dates: start: 20200211, end: 20200228
  18. ATORVASTATIN CALCIUM. [Interacting]
     Active Substance: ATORVASTATIN CALCIUM
     Indication: HYPERLIPIDAEMIA
     Route: 048

REACTIONS (9)
  - Type IV hypersensitivity reaction [Recovering/Resolving]
  - Drug eruption [Recovered/Resolved]
  - Drug interaction [Unknown]
  - Off label use [Unknown]
  - Drug level increased [Unknown]
  - Seizure [Recovered/Resolved]
  - Anticonvulsant drug level increased [Recovered/Resolved]
  - Hepatic function abnormal [Recovered/Resolved]
  - Antipsychotic drug level increased [Recovered/Resolved]

NARRATIVE: CASE EVENT DATE: 2020
